FAERS Safety Report 19845282 (Version 2)
Quarter: 2021Q3

REPORT INFORMATION
  Report Type: Spontaneous
  Country: US (occurrence: US)
  Receive Date: 20210917
  Receipt Date: 20210928
  Transmission Date: 20211014
  Serious: Yes (Other)
  Sender: FDA-Public Use
  Company Number: US-HTU-2021US022800

PATIENT
  Age: 82 Year
  Sex: Female

DRUGS (4)
  1. VALCHLOR [Suspect]
     Active Substance: MECHLORETHAMINE
     Indication: CUTANEOUS T-CELL LYMPHOMA
     Dosage: UNK, 3/WEEK
     Route: 061
     Dates: start: 202106, end: 2021
  2. TRIAMCINOLONE [Suspect]
     Active Substance: TRIAMCINOLONE
     Indication: CUTANEOUS T-CELL LYMPHOMA
     Dosage: UNK, QD IN THE MORNING
     Route: 061
  3. METHOTREXATE. [Concomitant]
     Active Substance: METHOTREXATE
     Indication: CUTANEOUS T-CELL LYMPHOMA
     Dosage: 8 TABLETS, 1/WEEK WITH A MEAL
     Route: 048
  4. VALCHLOR [Suspect]
     Active Substance: MECHLORETHAMINE
     Dosage: UNK, 5/WEEK
     Route: 061
     Dates: start: 2021

REACTIONS (11)
  - Sleep disorder due to a general medical condition [Not Recovered/Not Resolved]
  - Application site cellulitis [Recovering/Resolving]
  - Application site nodule [Recovering/Resolving]
  - Application site pain [Unknown]
  - Application site erythema [Not Recovered/Not Resolved]
  - Intentional product use issue [Unknown]
  - Application site discolouration [Not Recovered/Not Resolved]
  - Skin fissures [Unknown]
  - Off label use [Unknown]
  - Condition aggravated [Unknown]
  - Application site swelling [Recovering/Resolving]

NARRATIVE: CASE EVENT DATE: 2021
